FAERS Safety Report 10583370 (Version 2)
Quarter: 2014Q4

REPORT INFORMATION
  Report Type: Spontaneous
  Country: IT (occurrence: None)
  Receive Date: 20141112
  Receipt Date: 20141204
  Transmission Date: 20150529
  Serious: Yes (Death, Hospitalization)
  Sender: FDA-Public Use
  Company Number: 2014STPI000621

PATIENT
  Age: 76 Year
  Sex: Male

DRUGS (26)
  1. LYRICA [Suspect]
     Active Substance: PREGABALIN
     Indication: PAIN
     Dates: start: 20140610, end: 20140704
  2. ASPIRIN. [Concomitant]
     Active Substance: ASPIRIN
  3. SODIUM POLYSTYRENE SULFONATE (SODIUM POLYSTYRENE SULFONATE) [Concomitant]
  4. ASPIRIN DC (ACETYLSALICYLIC ACID) [Concomitant]
  5. PRAVASTATIN SODIUM (PRAVASTATIN SODIUM) [Concomitant]
  6. LEVOFLOXACIN (LEVOFLOXACIN) [Concomitant]
     Active Substance: LEVOFLOXACIN
  7. SACCHARUMLACTIS [Concomitant]
  8. DOMPRIDONE (DOMPERIDONE MALEATE) [Concomitant]
  9. OFLOXACIN (OFLOXACIN) [Concomitant]
  10. CARNITOR [Suspect]
     Active Substance: LEVOCARNITINE
     Indication: CARNITINE DEFICIENCY
     Route: 042
     Dates: start: 20131218, end: 20140530
  11. DARBEPOETIN ALFA (DARBEPOETIN ALFA) [Concomitant]
  12. NIFEDIPINE (NFEDIPINE) [Concomitant]
  13. VALSARTAN (VALSARTAN) [Concomitant]
     Active Substance: VALSARTAN
  14. TRAMCET [Suspect]
     Active Substance: ACETAMINOPHEN\TRAMADOL
     Indication: PAIN
     Route: 048
     Dates: start: 20140610, end: 20140623
  15. DIAZEPAM HYDROCHLORIDE (DIAZEPAM HYDROCHLORIDE) [Concomitant]
  16. CALCIUM POLYSTYRENE SULFONATE (CALCIUM POLYSTYRENE SULFONATE) [Concomitant]
  17. FUROSEMIDE (FUROSEMIDE) [Concomitant]
     Active Substance: FUROSEMIDE
  18. MAXACALCITOL (MAXACALCITOL) [Concomitant]
  19. PITAVASTATIN (PITAVASTATIN) [Concomitant]
  20. RANITIDINE [Concomitant]
     Active Substance: RANITIDINE\RANITIDINE HYDROCHLORIDE
  21. SEVELAMER HYDROCHLORIDE (SEVERALMER HYDROCHLORIDE) [Concomitant]
  22. ALLOPURINOL (ALLOPURINOL) [Concomitant]
     Active Substance: ALLOPURINOL
  23. FERRIC POLYSACCHARIDE  COMPLEX (POLUSACCHARIDE-IRON COMPLEX) [Concomitant]
  24. ALFACALCIDOL (ALFACALCIDOL) [Concomitant]
  25. ENALAPRIL (ENALAPRIL MALEATE) [Concomitant]
  26. ETIZOLAM (ETIZOLAM) [Concomitant]

REACTIONS (6)
  - Intervertebral disc protrusion [None]
  - Respiratory depression [None]
  - Gait disturbance [None]
  - Depressed level of consciousness [None]
  - Toxicity to various agents [None]
  - Spinal column stenosis [None]

NARRATIVE: CASE EVENT DATE: 20140303
